FAERS Safety Report 23459248 (Version 5)
Quarter: 2024Q1

REPORT INFORMATION
  Report Type: Spontaneous
  Country: US (occurrence: US)
  Receive Date: 20240131
  Receipt Date: 20240314
  Transmission Date: 20240409
  Serious: No
  Sender: FDA-Public Use
  Company Number: US-AMGEN-USASP2024019888

PATIENT
  Age: 42 Year
  Sex: Female

DRUGS (3)
  1. AIMOVIG [Suspect]
     Active Substance: ERENUMAB-AOOE
     Indication: Headache
     Dosage: 70 MILLIGRAM, QMO
     Route: 058
     Dates: start: 2023, end: 2023
  2. AIMOVIG [Suspect]
     Active Substance: ERENUMAB-AOOE
     Indication: Vein disorder
     Dosage: 140 MILLIGRAM, QMO
     Route: 058
     Dates: start: 2023
  3. NURTEC ODT [Concomitant]
     Active Substance: RIMEGEPANT SULFATE
     Indication: Headache
     Dosage: UNK

REACTIONS (4)
  - Accidental exposure to product [Unknown]
  - Device difficult to use [Unknown]
  - Wrong technique in product usage process [Unknown]
  - Drug dose omission by device [Unknown]

NARRATIVE: CASE EVENT DATE: 20240129
